FAERS Safety Report 18168795 (Version 1)
Quarter: 2020Q3

REPORT INFORMATION
  Report Type: Spontaneous
  Country: GB (occurrence: GB)
  Receive Date: 20200818
  Receipt Date: 20200818
  Transmission Date: 20201103
  Serious: Yes (Other)
  Sender: FDA-Public Use
  Company Number: GB-ASCEND THERAPEUTICS US, LLC-2088763

PATIENT
  Age: 52 Year
  Sex: Female
  Weight: 56 kg

DRUGS (4)
  1. OESTROGEL (ESTRADIOL), UNKNOWN?INDICATION FOR USE: MENOPAUSE [Concomitant]
  2. ESTROGEL [Suspect]
     Active Substance: ESTRADIOL
     Indication: MENOPAUSE
     Route: 003
     Dates: start: 20200625
  3. ESTROGEL [Suspect]
     Active Substance: ESTRADIOL
  4. OESTRODOSE (ESTRADIOL)?INDICATION FOR USE: MENOPAUSE [Suspect]
     Active Substance: ESTRADIOL
     Route: 003
     Dates: start: 20200625

REACTIONS (8)
  - Abdominal distension [Recovering/Resolving]
  - Arthralgia [Recovering/Resolving]
  - Product substitution issue [Unknown]
  - Drug ineffective [Unknown]
  - Irritability [Recovering/Resolving]
  - Night sweats [Recovering/Resolving]
  - Anxiety [Recovering/Resolving]
  - Insomnia [Unknown]

NARRATIVE: CASE EVENT DATE: 20200626
